FAERS Safety Report 7055274-8 (Version None)
Quarter: 2010Q4

REPORT INFORMATION
  Report Type: 
  Country: None (occurrence: None)
  Receive Date: 20101020
  Receipt Date: 20101020
  Transmission Date: 20110411
  Serious: Yes (Other)
  Sender: FDA-Public Use
  Company Number: None

PATIENT
  Sex: Female
  Weight: 58.9676 kg

DRUGS (1)
  1. TRAMADOL HCL [Suspect]
     Indication: NEURALGIA
     Dosage: 3X'S DAY
     Dates: start: 20100727, end: 20100928

REACTIONS (5)
  - ARTHRITIS [None]
  - DRUG INEFFECTIVE FOR UNAPPROVED INDICATION [None]
  - MUSCLE SPASMS [None]
  - MUSCULOSKELETAL STIFFNESS [None]
  - PAIN [None]
